FAERS Safety Report 4901417-9 (Version None)
Quarter: 2006Q1

REPORT INFORMATION
  Report Type: 
  Country: None (occurrence: None)
  Receive Date: 20060201
  Receipt Date: 20060201
  Transmission Date: 20060701
  Serious: Yes (Hospitalization)
  Sender: FDA-Public Use
  Company Number: None

PATIENT
  Age: 43 Year
  Sex: Female
  Weight: 68.0396 kg

DRUGS (1)
  1. DOXYCYCLINE [Suspect]
     Indication: PNEUMONIA
     Dosage: 100 MG BID PO
     Route: 048
     Dates: start: 20060108, end: 20060111

REACTIONS (1)
  - PULMONARY EOSINOPHILIA [None]
